FAERS Safety Report 4622101-5 (Version None)
Quarter: 2005Q1

REPORT INFORMATION
  Report Type: 
  Country: None (occurrence: None)
  Receive Date: 20050329
  Receipt Date: 20050314
  Transmission Date: 20050727
  Serious: Yes (Other)
  Sender: FDA-Public Use
  Company Number: TRP_0085_2005

PATIENT
  Age: 50 Year
  Sex: Male

DRUGS (3)
  1. RIBASPHERE [Suspect]
     Indication: HEPATITIS C
     Dates: start: 20050107
  2. PEG-INTRON [Suspect]
     Indication: HEPATITIS C
     Dates: start: 20050107
  3. ADVAIR DISKUS 100/50 [Concomitant]

REACTIONS (3)
  - EMPHYSEMA [None]
  - FATIGUE [None]
  - HYPERSOMNIA [None]
